FAERS Safety Report 6533271-6 (Version None)
Quarter: 2010Q1

REPORT INFORMATION
  Report Type: 
  Country: None (occurrence: None)
  Receive Date: 20100111
  Receipt Date: 20100104
  Transmission Date: 20100710
  Serious: Yes (Hospitalization)
  Sender: FDA-Public Use
  Company Number: US-BAYER-201010113BCC

PATIENT
  Age: 49 Year
  Sex: Female
  Weight: 73 kg

DRUGS (5)
  1. ASPIRIN [Suspect]
     Indication: ISCHAEMIC HEART DISEASE PROPHYLAXIS
     Dosage: TOTAL DAILY DOSE: 81 MG  UNIT DOSE: 81 MG
     Route: 048
     Dates: end: 20080101
  2. DIOVAN [Concomitant]
     Route: 065
  3. METAGLIP [Concomitant]
     Route: 065
  4. SIMVASTATIN [Concomitant]
     Route: 065
  5. RANITIDINE [Concomitant]
     Route: 065

REACTIONS (5)
  - ABDOMINAL PAIN UPPER [None]
  - FEELING COLD [None]
  - HAEMATOCHEZIA [None]
  - LOSS OF CONSCIOUSNESS [None]
  - TREMOR [None]
